FAERS Safety Report 4295056-3 (Version None)
Quarter: 2004Q1

REPORT INFORMATION
  Report Type: 
  Country: None (occurrence: None)
  Receive Date: 20040213
  Receipt Date: 20040202
  Transmission Date: 20041129
  Serious: Yes (Hospitalization, Other)
  Sender: FDA-Public Use
  Company Number: 2004S1000333

PATIENT
  Age: 79 Year
  Sex: Female

DRUGS (3)
  1. METOPROLOL TARTRATE [Suspect]
     Indication: HYPERTENSION
     Dosage: 50MG QD, ORAL
     Route: 048
     Dates: start: 20010101
  2. FENTANYL [Concomitant]
  3. GEMCITABINE HCL [Concomitant]

REACTIONS (4)
  - OEDEMA PERIPHERAL [None]
  - POST PROCEDURAL NAUSEA [None]
  - RASH ERYTHEMATOUS [None]
  - THROMBOSIS [None]
